FAERS Safety Report 5033130-4 (Version None)
Quarter: 2006Q2

REPORT INFORMATION
  Report Type: 
  Country: None (occurrence: None)
  Receive Date: 20060622
  Receipt Date: 20060612
  Transmission Date: 20061013
  Serious: Yes (Hospitalization)
  Sender: FDA-Public Use
  Company Number: BR-ABBOTT-06P-020-0336105-00

PATIENT
  Age: 15 Year
  Sex: Male
  Weight: 22 kg

DRUGS (2)
  1. DEPAKOTE [Suspect]
     Indication: MICROCEPHALY
     Route: 048
  2. ZIPRASIDONE HCL [Concomitant]
     Indication: DRUG USE FOR UNKNOWN INDICATION
     Route: 048

REACTIONS (3)
  - DYSPHAGIA [None]
  - DYSPNOEA [None]
  - GLOSSITIS [None]
